FAERS Safety Report 7166387-4 (Version None)
Quarter: 2010Q4

REPORT INFORMATION
  Report Type: 
  Country: None (occurrence: None)
  Receive Date: 20101216
  Receipt Date: 20101102
  Transmission Date: 20110411
  Serious: No
  Sender: FDA-Public Use
  Company Number: US-ABBOTT-10P-163-0683626-00

PATIENT
  Sex: Female
  Weight: 81.72 kg

DRUGS (5)
  1. TRILIPIX [Suspect]
     Indication: BLOOD CHOLESTEROL INCREASED
     Dosage: DAILY AT BED TIME
     Route: 048
     Dates: start: 20100916, end: 20101101
  2. SIMVASTATIN [Concomitant]
     Indication: BLOOD CHOLESTEROL INCREASED
     Dates: start: 20080101
  3. ATENOLOL [Concomitant]
     Indication: CARDIAC FLUTTER
     Dates: start: 19920101
  4. ATENOLOL [Concomitant]
     Indication: ARRHYTHMIA
  5. HORMONE IMPLANT [Concomitant]
     Indication: MENOPAUSE
     Dosage: ESTROGEN/TESTOSTERONE, 1 IN 3  MONTHS
     Dates: start: 20090501

REACTIONS (1)
  - ALOPECIA [None]
